FAERS Safety Report 4307700-2 (Version None)
Quarter: 2004Q1

REPORT INFORMATION
  Report Type: 
  Country: None (occurrence: None)
  Receive Date: 20040226
  Receipt Date: 20040219
  Transmission Date: 20041129
  Serious: Yes (Disabling)
  Sender: FDA-Public Use
  Company Number: FRWYE474419DEC03

PATIENT
  Age: 77 Year
  Sex: Female

DRUGS (4)
  1. EFFEXOR [Suspect]
     Indication: DEPRESSION
     Dosage: 0.15 G 1X PER 1 DAY ORAL
     Route: 048
     Dates: start: 20020102, end: 20031218
  2. CO-RENITEC (ENALAPRIL MALEATE/HYDROCHLOROTHIAZIDE) [Concomitant]
  3. FLECAINIDE ACETATE [Concomitant]
  4. PROGESTERONE [Concomitant]

REACTIONS (3)
  - MYASTHENIC SYNDROME [None]
  - PARKINSON'S DISEASE [None]
  - PROGRESSIVE SUPRANUCLEAR PALSY [None]
